APPROVED DRUG PRODUCT: BENZPHETAMINE HYDROCHLORIDE
Active Ingredient: BENZPHETAMINE HYDROCHLORIDE
Strength: 50MG
Dosage Form/Route: TABLET;ORAL
Application: A040578 | Product #001
Applicant: SCINOPHARM TAIWAN LTD
Approved: Apr 17, 2006 | RLD: No | RS: No | Type: DISCN